FAERS Safety Report 9221738 (Version 1)
Quarter: 2013Q2

REPORT INFORMATION
  Report Type: Spontaneous
  Country: US (occurrence: None)
  Receive Date: 20130408
  Receipt Date: 20130408
  Transmission Date: 20140414
  Serious: Yes (Other)
  Sender: FDA-Public Use
  Company Number: 2013/080

PATIENT
  Age: 64 Year
  Sex: Female

DRUGS (7)
  1. AMLODIPINE [Suspect]
  2. SIMVASTATIN [Suspect]
     Indication: BLOOD CHOLESTEROL INCREASED
  3. RAMIPRIL (NO PREF. NAME) [Concomitant]
  4. ATORVASTATIN (NO PREF. NAME) [Concomitant]
  5. ANTIBIOTICS (NAME NOT SPECIFIED) [Concomitant]
  6. ANTIHISTAMINES (NAME NOT SPECIFIED) [Concomitant]
  7. DIURETICS (NAME NOT SPECIFIED) [Concomitant]

REACTIONS (16)
  - Nasopharyngitis [None]
  - Diarrhoea [None]
  - Gait disturbance [None]
  - Hepatic steatosis [None]
  - Infection [None]
  - Hepatomegaly [None]
  - Paraesthesia [None]
  - Muscle spasms [None]
  - Erythema [None]
  - Speech disorder [None]
  - Oedema peripheral [None]
  - Swollen tongue [None]
  - Weight increased [None]
  - Drug hypersensitivity [None]
  - Drug interaction [None]
  - Blood urine present [None]
